FAERS Safety Report 19503555 (Version 1)
Quarter: 2021Q3

REPORT INFORMATION
  Report Type: Spontaneous
  Country: DE (occurrence: DE)
  Receive Date: 20210707
  Receipt Date: 20210707
  Transmission Date: 20211014
  Serious: Yes (Hospitalization)
  Sender: FDA-Public Use
  Company Number: DE-ANIPHARMA-2021-DE-000142

PATIENT
  Age: 64 Year
  Sex: Female

DRUGS (2)
  1. CANDESARTAN CILEXETIL. [Suspect]
     Active Substance: CANDESARTAN CILEXETIL
     Indication: PRODUCT USED FOR UNKNOWN INDICATION
     Dosage: 16 MG UNK
     Route: 048
  2. PRAMIPEXOL [Suspect]
     Active Substance: PRAMIPEXOLE
     Dosage: 18 MG DAILY
     Route: 048

REACTIONS (3)
  - Headache [Recovering/Resolving]
  - Syncope [Unknown]
  - Dizziness [Recovering/Resolving]
